FAERS Safety Report 15232374 (Version 1)
Quarter: 2018Q3

REPORT INFORMATION
  Report Type: Spontaneous
  Country: US (occurrence: US)
  Receive Date: 20180802
  Receipt Date: 20180802
  Transmission Date: 20181010
  Serious: No
  Sender: FDA-Public Use
  Company Number: US-BAUSCH-BL-2018-020314

PATIENT
  Age: 56 Year
  Sex: Female
  Weight: 54.48 kg

DRUGS (3)
  1. DOXYCYCLINE. [Concomitant]
     Active Substance: DOXYCYCLINE
     Indication: PRODUCT USED FOR UNKNOWN INDICATION
  2. ELIDEL [Suspect]
     Active Substance: PIMECROLIMUS
     Indication: DERMATITIS CONTACT
     Route: 065
     Dates: start: 2016
  3. ELIDEL [Suspect]
     Active Substance: PIMECROLIMUS
     Indication: ROSACEA
     Route: 061
     Dates: start: 201805, end: 20180613

REACTIONS (3)
  - Vision blurred [Not Recovered/Not Resolved]
  - Expired product administered [Recovered/Resolved]
  - Chalazion [Recovered/Resolved]

NARRATIVE: CASE EVENT DATE: 201711
